FAERS Safety Report 4883274-2 (Version None)
Quarter: 2006Q1

REPORT INFORMATION
  Report Type: 
  Country: None (occurrence: None)
  Receive Date: 20060112
  Receipt Date: 20060103
  Transmission Date: 20060701
  Serious: Yes (Other)
  Sender: FDA-Public Use
  Company Number: 2006RR-01442

PATIENT
  Age: 60 Year
  Sex: Male

DRUGS (3)
  1. METFORMIN HCL [Suspect]
  2. GLYBURIDE [Suspect]
     Dosage: 20 DOSES X 5MG ONCE,
  3. IBUPROFEN [Suspect]

REACTIONS (19)
  - ABDOMINAL PAIN [None]
  - AGITATION [None]
  - ANURIA [None]
  - APNOEA [None]
  - BACK PAIN [None]
  - BODY TEMPERATURE DECREASED [None]
  - HAEMODIALYSIS [None]
  - LACTIC ACIDOSIS [None]
  - MEAN ARTERIAL PRESSURE INCREASED [None]
  - METABOLIC ACIDOSIS [None]
  - MULTIPLE DRUG OVERDOSE [None]
  - POISONING [None]
  - POLYURIA [None]
  - RESPIRATORY ARREST [None]
  - SOMNOLENCE [None]
  - TACHYPNOEA [None]
  - VASCULAR RESISTANCE SYSTEMIC DECREASED [None]
  - VENTRICULAR FIBRILLATION [None]
  - VOMITING [None]
